FAERS Safety Report 21639796 (Version 1)
Quarter: 2022Q4

REPORT INFORMATION
  Report Type: Spontaneous
  Country: US (occurrence: US)
  Receive Date: 20221124
  Receipt Date: 20221124
  Transmission Date: 20230113
  Serious: Yes (Hospitalization, Disabling)
  Sender: FDA-Public Use
  Company Number: US-APOTEX-2022AP015727

PATIENT
  Age: 87 Year
  Sex: Female
  Weight: 44.5 kg

DRUGS (1)
  1. LEVOFLOXACIN [Suspect]
     Active Substance: LEVOFLOXACIN
     Indication: Bacterial test positive
     Dosage: UNK
     Route: 065

REACTIONS (1)
  - Tendonitis [Not Recovered/Not Resolved]
